FAERS Safety Report 5234124-6 (Version None)
Quarter: 2007Q1

REPORT INFORMATION
  Report Type: 
  Country: None (occurrence: None)
  Receive Date: 20070208
  Receipt Date: 20070126
  Transmission Date: 20070707
  Serious: Yes (Life-Threatening, Hospitalization, Disabling, Other)
  Sender: FDA-Public Use
  Company Number: GB-MERCK-0701GBR00202

PATIENT
  Age: 89 Year
  Sex: Male
  Weight: 55 kg

DRUGS (18)
  1. ZOCOR [Suspect]
     Indication: MYOCARDIAL ISCHAEMIA
     Route: 048
     Dates: start: 20061029, end: 20061127
  2. ALUMINUM HYDROXIDE AND SIMETHICONE [Concomitant]
     Route: 048
     Dates: start: 20020130
  3. ATENOLOL [Concomitant]
     Route: 065
     Dates: start: 20000821
  4. CLOPIDOGREL BISULFATE [Concomitant]
     Route: 065
     Dates: start: 20000821
  5. ACETAMINOPHEN AND CODEINE PHOSPHATE [Concomitant]
     Indication: PAIN
     Route: 065
     Dates: start: 20061125
  6. CROTAMITON [Concomitant]
     Route: 065
     Dates: start: 20060419
  7. DILTIAZEM HYDROCHLORIDE [Concomitant]
     Route: 065
     Dates: start: 20030403
  8. MINERAL OIL [Concomitant]
     Route: 065
     Dates: start: 20060419
  9. DOTHIEPIN HYDROCHLORIDE [Concomitant]
     Route: 065
     Dates: start: 20031009
  10. NITROGLYCERIN [Concomitant]
     Route: 065
     Dates: start: 19960514
  11. IBUPROFEN [Concomitant]
     Route: 065
     Dates: start: 20040427
  12. INDORAMIN [Concomitant]
     Route: 065
     Dates: start: 20050928
  13. ISOSORBIDE MONONITRATE [Concomitant]
     Route: 065
     Dates: start: 20001009
  14. LISINOPRIL [Concomitant]
     Route: 065
     Dates: start: 19990809
  15. NICORANDIL [Concomitant]
     Route: 065
     Dates: end: 20061103
  16. PANTOPRAZOLE [Concomitant]
     Route: 065
     Dates: start: 20021121
  17. ACETAMINOPHEN [Concomitant]
     Route: 065
     Dates: start: 20050216
  18. SENNA [Concomitant]
     Route: 065
     Dates: start: 20061125

REACTIONS (2)
  - MYOSITIS [None]
  - RHABDOMYOLYSIS [None]
